FAERS Safety Report 8140682-4 (Version None)
Quarter: 2012Q1

REPORT INFORMATION
  Report Type: 
  Country: None (occurrence: None)
  Receive Date: 20120216
  Receipt Date: 20120210
  Transmission Date: 20120608
  Serious: Yes (Life-Threatening)
  Sender: FDA-Public Use
  Company Number: GB-BAYER-2012-014928

PATIENT
  Age: 66 Year
  Sex: Male

DRUGS (14)
  1. FINASTERIDE [Concomitant]
     Dosage: UNK
     Dates: start: 20090101
  2. TAMSULOSIN HCL [Concomitant]
     Dosage: UNK
     Dates: start: 20081125
  3. CIPROFLOXACIN [Suspect]
     Route: 048
  4. ASPIRIN [Concomitant]
  5. CLOTRIMAZOLE [Concomitant]
     Dosage: UNK
     Dates: start: 20080812, end: 20080923
  6. METFORMIN HCL [Suspect]
     Indication: TYPE 2 DIABETES MELLITUS
     Dosage: UNK
     Route: 048
     Dates: start: 20080513
  7. CIPROFLOXACIN [Suspect]
     Indication: PROPHYLAXIS
     Dosage: UNK
     Route: 051
     Dates: start: 20090316, end: 20090316
  8. UNKNOWN DRUG [Suspect]
     Indication: TYPE 2 DIABETES MELLITUS
     Dosage: UNK
     Route: 048
     Dates: start: 20080722, end: 20090625
  9. GLICLAZIDE [Concomitant]
     Dosage: UNK
     Dates: end: 20080513
  10. SIMVASTATIN [Concomitant]
  11. PLACEBO [Suspect]
     Indication: TYPE 2 DIABETES MELLITUS
  12. RAMIPRIL [Concomitant]
  13. DAKTACORT [Concomitant]
     Dosage: UNK
     Dates: start: 20080923
  14. ARMODAFINIL [Concomitant]
     Dosage: UNK
     Dates: start: 20080923, end: 20080923

REACTIONS (1)
  - URTICARIA [None]
